FAERS Safety Report 10922197 (Version 4)
Quarter: 2015Q3

REPORT INFORMATION
  Report Type: Spontaneous
  Country: JP (occurrence: JP)
  Receive Date: 20150317
  Receipt Date: 20150709
  Transmission Date: 20151125
  Serious: Yes (Death)
  Sender: FDA-Public Use
  Company Number: JP-SA-2015SA032447

PATIENT
  Age: 72 Year
  Sex: Male
  Weight: 63 kg

DRUGS (19)
  1. PROMAC [Concomitant]
     Active Substance: NITROFURANTOIN
     Dates: start: 20141126
  2. RILMAZAFONE HYDROCHLORIDE [Concomitant]
     Active Substance: RILMAZAFONE HYDROCHLORIDE
     Dates: start: 20150217
  3. NOVORAPID [Concomitant]
     Active Substance: INSULIN ASPART
  4. AMARYL [Concomitant]
     Active Substance: GLIMEPIRIDE
  5. CRESTOR [Concomitant]
     Active Substance: ROSUVASTATIN CALCIUM
  6. NEXIUM [Concomitant]
     Active Substance: ESOMEPRAZOLE MAGNESIUM
     Dates: start: 20141126
  7. MIYA-BM [Concomitant]
     Active Substance: CLOSTRIDIUM BUTYRICUM SPORES STRAIN M-55
     Dates: start: 20150130
  8. OXYCONTIN [Concomitant]
     Active Substance: OXYCODONE HYDROCHLORIDE
     Dosage: SLOW RELEASE TABLET
     Dates: start: 20150218
  9. SUREPOST [Concomitant]
     Active Substance: REPAGLINIDE
     Dates: start: 20150226
  10. XELODA [Suspect]
     Active Substance: CAPECITABINE
     Indication: COLON CANCER
     Route: 048
     Dates: start: 20150210, end: 20150224
  11. CALBLOCK [Concomitant]
     Active Substance: AZELNIDIPINE
  12. CELECOX [Concomitant]
     Active Substance: CELECOXIB
     Dates: start: 20141203
  13. ELPLAT [Suspect]
     Active Substance: OXALIPLATIN
     Indication: COLON CANCER
     Dosage: INJECTION.
     Route: 041
     Dates: start: 20150210, end: 20150210
  14. XELODA [Suspect]
     Active Substance: CAPECITABINE
     Indication: COLON CANCER
     Route: 065
     Dates: start: 20141126, end: 20150120
  15. MARZULENE S [Concomitant]
     Active Substance: GLUTAMINE\SODIUM GUALENATE
     Dates: start: 20141126, end: 20141213
  16. SELBEX [Concomitant]
     Active Substance: TEPRENONE
     Dates: start: 20141214
  17. NAUZELIN [Concomitant]
     Active Substance: DOMPERIDONE
     Dates: start: 20150213
  18. HERBAL EXTRACT NOS [Concomitant]
     Active Substance: HERBALS
     Dates: start: 20150130
  19. MAGMITT [Concomitant]
     Active Substance: MAGNESIUM OXIDE
     Dates: start: 20150204

REACTIONS (1)
  - Hepatic cirrhosis [Fatal]

NARRATIVE: CASE EVENT DATE: 20150301
